FAERS Safety Report 16072891 (Version 3)
Quarter: 2019Q3

REPORT INFORMATION
  Report Type: Spontaneous
  Country: US (occurrence: US)
  Receive Date: 20190314
  Receipt Date: 20190712
  Transmission Date: 20191004
  Serious: Yes (Hospitalization, Other)
  Sender: FDA-Public Use
  Company Number: US-PFIZER INC-2015332914

PATIENT
  Age: 77 Year
  Sex: Female
  Weight: 43.84 kg

DRUGS (3)
  1. RELPAX [Suspect]
     Active Substance: ELETRIPTAN HYDROBROMIDE
     Indication: HEADACHE
     Dosage: 40 MG, AS NEEDED (40 MG ONCE AS NEEDED)
     Dates: start: 2019
  2. TREXIMET [Concomitant]
     Active Substance: NAPROXEN SODIUM\SUMATRIPTAN SUCCINATE
     Indication: HEADACHE
     Dosage: 85 MG, UNK
  3. RELPAX [Suspect]
     Active Substance: ELETRIPTAN HYDROBROMIDE
     Indication: CLUSTER HEADACHE
     Dosage: 40 MG, 1X/DAY (TAKE ONSET OF HA REPEAT 1X IF NEEDED)
     Route: 048

REACTIONS (4)
  - Drug effective for unapproved indication [Unknown]
  - Dyspnoea [Not Recovered/Not Resolved]
  - Off label use [Unknown]
  - Product prescribing error [Unknown]

NARRATIVE: CASE EVENT DATE: 2013
